FAERS Safety Report 7223177 (Version 3)
Quarter: 2013Q1

REPORT INFORMATION
  Report Type: Spontaneous
  Country: GB (occurrence: None)
  Receive Date: 20091202
  Receipt Date: 20130319
  Transmission Date: 20140127
  Serious: Yes (Other)
  Sender: FDA-Public Use
  Company Number: 439887

PATIENT
  Age: 58 Year
  Sex: Female
  Weight: 95 kg

DRUGS (12)
  1. EPIRUBICIN HYDROCHLORIDE [Suspect]
     Indication: GASTRIC CANCER
  2. CISPLATIN [Suspect]
     Indication: GASTRIC CANCER
  3. XELODA [Suspect]
     Indication: ADENOCARCINOMA
     Dosage: 2450 MG, DAY, ORAL
     Route: 048
     Dates: start: 20070221, end: 20070222
  4. (CLEXANE) [Concomitant]
  5. DEXAMETHASONE [Concomitant]
  6. GABAPENTIN [Concomitant]
  7. IBUPROFEN [Concomitant]
  8. MS CONTIN [Concomitant]
  9. OMEPRAZOLE [Concomitant]
  10. ONDANSETRON [Concomitant]
  11. PARACETAMOL [Concomitant]
  12. (SEVREDOL) [Concomitant]

REACTIONS (4)
  - Drug hypersensitivity [None]
  - Rash [None]
  - Swelling face [None]
  - Erythema [None]
